FAERS Safety Report 7141176-5 (Version None)
Quarter: 2010Q4

REPORT INFORMATION
  Report Type: 
  Country: None (occurrence: None)
  Receive Date: 20101202
  Receipt Date: 20101202
  Transmission Date: 20110411
  Serious: No
  Sender: FDA-Public Use
  Company Number: None

PATIENT
  Age: 67 Year
  Sex: Female
  Weight: 58.9676 kg

DRUGS (1)
  1. RECLAST [Suspect]
     Indication: BONE DENSITY DECREASED
     Dosage: INTERVENOUS YEARLY
     Route: 042
     Dates: start: 20100801

REACTIONS (1)
  - VISUAL ACUITY REDUCED [None]
